FAERS Safety Report 21784417 (Version 1)
Quarter: 2022Q4

REPORT INFORMATION
  Report Type: Report from Study
  Country: IE (occurrence: IE)
  Receive Date: 20221227
  Receipt Date: 20221227
  Transmission Date: 20230113
  Serious: Yes (Hospitalization)
  Sender: FDA-Public Use
  Company Number: IE-AstraZeneca-2022A388306

PATIENT
  Sex: Male

DRUGS (9)
  1. SYNAGIS [Suspect]
     Active Substance: PALIVIZUMAB
     Indication: Bronchopulmonary dysplasia
     Dates: start: 20221019
  2. SYNAGIS [Suspect]
     Active Substance: PALIVIZUMAB
     Indication: Dysplasia
     Dosage: 15 MG/KG AFTER 28 DAYS - DOSE 108MG, 100MG ADMINISTERED TO PATIENT.
     Dates: start: 20221117
  3. SYNAGIS [Suspect]
     Active Substance: PALIVIZUMAB
     Dosage: 15 MG/KG AFTER 28 DAYS - DOSE 108MG, 100MG ADMINISTERED TO PATIENT.
     Dates: start: 20221117
  4. SYNAGIS [Suspect]
     Active Substance: PALIVIZUMAB
     Dates: start: 20221219
  5. SYNAGIS [Suspect]
     Active Substance: PALIVIZUMAB
     Dates: start: 20221219
  6. SYNAGIS [Suspect]
     Active Substance: PALIVIZUMAB
     Dates: start: 20221219
  7. CAPTOPRIL [Concomitant]
     Active Substance: CAPTOPRIL
     Dosage: 1.5ML UNKNOWN
  8. OMEPRAZOLE [Concomitant]
     Active Substance: OMEPRAZOLE
  9. ERYTHROMYCIN [Concomitant]
     Active Substance: ERYTHROMYCIN
     Dosage: 4 TIMES A DAY

REACTIONS (2)
  - Vomiting [Unknown]
  - Off label use [Unknown]
